FAERS Safety Report 7641046-X (Version None)
Quarter: 2011Q3

REPORT INFORMATION
  Report Type: 
  Country: None (occurrence: None)
  Receive Date: 20110727
  Receipt Date: 20110727
  Transmission Date: 20111222
  Serious: Yes (Other)
  Sender: FDA-Public Use
  Company Number: None

PATIENT
  Age: 57 Year
  Sex: Female
  Weight: 90.7194 kg

DRUGS (4)
  1. DICLOFENAC SODIUM [Suspect]
     Indication: ARTHRITIS
     Dosage: 75MG 2 X DAY
     Dates: start: 20110624, end: 20110705
  2. DICLOFENAC SODIUM [Suspect]
     Indication: EPICONDYLITIS
     Dosage: 75MG 2 X DAY
     Dates: start: 20110624, end: 20110705
  3. DICLOFENAC SODIUM [Suspect]
     Indication: ARTHRITIS
     Dosage: 75MG 2 X DAY
     Dates: start: 20110703
  4. DICLOFENAC SODIUM [Suspect]
     Indication: EPICONDYLITIS
     Dosage: 75MG 2 X DAY
     Dates: start: 20110703

REACTIONS (5)
  - FLATULENCE [None]
  - WEIGHT INCREASED [None]
  - OEDEMA PERIPHERAL [None]
  - DIARRHOEA [None]
  - JOINT SWELLING [None]
